FAERS Safety Report 6578362-9 (Version None)
Quarter: 2010Q1

REPORT INFORMATION
  Report Type: 
  Country: None (occurrence: None)
  Receive Date: 20100211
  Receipt Date: 20100128
  Transmission Date: 20100710
  Serious: Yes (Other)
  Sender: FDA-Public Use
  Company Number: US-CELGENEUS-163-20785-10012100

PATIENT

DRUGS (1)
  1. THALOMID [Suspect]
     Indication: CROHN'S DISEASE
     Route: 048

REACTIONS (1)
  - INTESTINAL STOMA [None]
